FAERS Safety Report 4846332-4 (Version None)
Quarter: 2005Q4

REPORT INFORMATION
  Report Type: 
  Country: None (occurrence: None)
  Receive Date: 20051125
  Receipt Date: 20051116
  Transmission Date: 20060501
  Serious: Yes (Hospitalization)
  Sender: FDA-Public Use
  Company Number: 2005144144

PATIENT
  Age: 52 Year
  Sex: Male
  Weight: 54 kg

DRUGS (10)
  1. NEURONTIN [Suspect]
     Indication: EPILEPSY
     Dosage: 900 MG (300 MG, 3 IN 1 D), ORAL
     Route: 048
     Dates: start: 20050601, end: 20051024
  2. NEURONTIN [Suspect]
     Indication: NEURALGIA
     Dosage: 900 MG (300 MG, 3 IN 1 D), ORAL
     Route: 048
     Dates: start: 20050601, end: 20051024
  3. BENZODIAZEPINE DERIVATIVES (BENZODIAZEPINE DERIVATIVES) [Suspect]
     Indication: ILL-DEFINED DISORDER
  4. DEPAKENE [Concomitant]
  5. ALL OTHER THERAPEUTIC PRODUCTS (ALL OTHER THERAPEUTIC PRODUCTS) [Concomitant]
  6. ACTRAPID HUMAN (INSULIN HUMAN) [Concomitant]
  7. SERTRALINE HCL [Concomitant]
  8. TRAZOLAN - SLOW RELEASE (TRAZODONE HYDROCHLORIDE) [Concomitant]
  9. SULPIRIDE (SULPIRIDE) [Concomitant]
  10. PROTHIPENDYL (PROTHIPENDYL) [Concomitant]

REACTIONS (2)
  - DRUG SCREEN POSITIVE [None]
  - NARCOLEPSY [None]
